FAERS Safety Report 4923331-5 (Version None)
Quarter: 2006Q1

REPORT INFORMATION
  Report Type: 
  Country: None (occurrence: None)
  Receive Date: 20060227
  Receipt Date: 20060116
  Transmission Date: 20060701
  Serious: Yes (Other)
  Sender: FDA-Public Use
  Company Number: PHNR2006AU00475

PATIENT
  Age: 67 Year
  Sex: Female

DRUGS (1)
  1. LAMISIL [Suspect]
     Indication: ONYCHOMYCOSIS
     Dosage: 250 MG, QD
     Route: 048
     Dates: start: 20051011, end: 20051210

REACTIONS (15)
  - AGEUSIA [None]
  - ANOREXIA [None]
  - ANTI-SS-A ANTIBODY POSITIVE [None]
  - ANTI-SS-B ANTIBODY POSITIVE [None]
  - ANTINUCLEAR ANTIBODY POSITIVE [None]
  - BLISTER [None]
  - CUTANEOUS LUPUS ERYTHEMATOSUS [None]
  - DERMATOSIS [None]
  - DIZZINESS [None]
  - FATIGUE [None]
  - INFLAMMATION [None]
  - MOUTH ULCERATION [None]
  - RASH [None]
  - URTICARIA [None]
  - WEIGHT DECREASED [None]
